FAERS Safety Report 9882361 (Version 3)
Quarter: 2014Q3

REPORT INFORMATION
  Report Type: Report from Study
  Country: US (occurrence: US)
  Receive Date: 20140207
  Receipt Date: 20140709
  Transmission Date: 20150326
  Serious: Yes (Hospitalization, Other)
  Sender: FDA-Public Use
  Company Number: US-ALEXION-A201304779

PATIENT

DRUGS (1)
  1. SOLIRIS [Suspect]
     Active Substance: ECULIZUMAB
     Indication: HAEMOLYTIC URAEMIC SYNDROME
     Dosage: UNK
     Route: 042

REACTIONS (7)
  - Plasmapheresis [Unknown]
  - Fatigue [Unknown]
  - Thrombotic thrombocytopenic purpura [Unknown]
  - Petechiae [Unknown]
  - Hypoaesthesia [Unknown]
  - Nervousness [Unknown]
  - Pyrexia [Unknown]
